FAERS Safety Report 25039780 (Version 3)
Quarter: 2025Q3

REPORT INFORMATION
  Report Type: Report from Study
  Country: US (occurrence: US)
  Receive Date: 20250305
  Receipt Date: 20250710
  Transmission Date: 20251020
  Serious: Yes (Hospitalization, Other)
  Sender: TAKEDA
  Company Number: US-TAKEDA-2025TUS022330

PATIENT
  Sex: Female
  Weight: 86 kg

DRUGS (6)
  1. VEDOLIZUMAB [Suspect]
     Active Substance: VEDOLIZUMAB
     Indication: Colitis ulcerative
  2. VEDOLIZUMAB [Suspect]
     Active Substance: VEDOLIZUMAB
     Indication: Colitis ulcerative
     Dosage: 108 MILLIGRAM, Q2WEEKS
     Dates: start: 20250301
  3. VEDOLIZUMAB [Suspect]
     Active Substance: VEDOLIZUMAB
  4. LASIX [Concomitant]
     Active Substance: FUROSEMIDE
  5. ELIQUIS [Concomitant]
     Active Substance: APIXABAN
  6. TYLENOL [Concomitant]
     Active Substance: ACETAMINOPHEN
     Indication: Pain

REACTIONS (6)
  - Neuropathy peripheral [Not Recovered/Not Resolved]
  - Sepsis [Unknown]
  - Balance disorder [Not Recovered/Not Resolved]
  - Restless legs syndrome [Unknown]
  - Tooth infection [Unknown]
  - Arthralgia [Not Recovered/Not Resolved]
